FAERS Safety Report 21238992 (Version 8)
Quarter: 2023Q1

REPORT INFORMATION
  Report Type: Report from Study
  Country: US (occurrence: US)
  Receive Date: 20220822
  Receipt Date: 20230206
  Transmission Date: 20230418
  Serious: Yes (Other)
  Sender: FDA-Public Use
  Company Number: US-XERIS PHARMACEUTICALS-2022XER00285

PATIENT
  Sex: Female
  Weight: 53.968 kg

DRUGS (2)
  1. RECORLEV [Suspect]
     Active Substance: LEVOKETOCONAZOLE
     Indication: Cushing^s syndrome
     Dosage: 1 TABLET (150 MG), 2X/DAY
     Route: 048
     Dates: start: 20220727, end: 20230117
  2. UNSPECIFIED INGREDIENT [Suspect]
     Active Substance: UNSPECIFIED INGREDIENT
     Indication: Hypertension
     Dosage: UNK

REACTIONS (24)
  - Fatigue [Recovering/Resolving]
  - Nausea [Unknown]
  - Abdominal pain upper [Unknown]
  - Hypoaesthesia [Recovering/Resolving]
  - Somnolence [Unknown]
  - Feeling of relaxation [Unknown]
  - Haematocrit decreased [Unknown]
  - Haemoglobin decreased [Unknown]
  - Skin exfoliation [Recovering/Resolving]
  - Skin disorder [Recovered/Resolved]
  - Skin texture abnormal [Recovered/Resolved]
  - Dyspnoea [Unknown]
  - Cortisol increased [Unknown]
  - Pollakiuria [Unknown]
  - Micturition urgency [Unknown]
  - Respiratory syncytial virus infection [Recovering/Resolving]
  - COVID-19 [Recovering/Resolving]
  - Weight decreased [Unknown]
  - Muscle atrophy [Unknown]
  - Dizziness [Recovering/Resolving]
  - Unevaluable event [Unknown]
  - Dry skin [Recovering/Resolving]
  - Hypertension [Unknown]
  - Middle insomnia [Unknown]

NARRATIVE: CASE EVENT DATE: 20220101
